FAERS Safety Report 7217586-4 (Version None)
Quarter: 2011Q1

REPORT INFORMATION
  Report Type: 
  Country: None (occurrence: None)
  Receive Date: 20110110
  Receipt Date: 20101222
  Transmission Date: 20110831
  Serious: Yes (Other)
  Sender: FDA-Public Use
  Company Number: US-ROCHE-699651

PATIENT
  Sex: Female
  Weight: 108.9 kg

DRUGS (5)
  1. PEGASYS [Suspect]
     Indication: HEPATITIS C
     Route: 058
     Dates: start: 20100222, end: 20100401
  2. SEROQUEL [Concomitant]
     Indication: BIPOLAR DISORDER
  3. RIBAVARIN [Concomitant]
     Indication: HEPATITIS C
     Route: 048
     Dates: start: 20100201, end: 20100401
  4. EFFEXOR [Concomitant]
     Indication: BIPOLAR DISORDER
  5. ABILIFY [Concomitant]
     Indication: BIPOLAR DISORDER

REACTIONS (2)
  - CONVULSION [None]
  - THROMBOSIS [None]
